FAERS Safety Report 10144972 (Version 1)
Quarter: 2014Q2

REPORT INFORMATION
  Report Type: Spontaneous
  Country: IT (occurrence: IT)
  Receive Date: 20140430
  Receipt Date: 20140430
  Transmission Date: 20141212
  Serious: Yes (Hospitalization)
  Sender: FDA-Public Use
  Company Number: IT-ROCHE-1389972

PATIENT
  Sex: Male

DRUGS (3)
  1. LUCENTIS [Suspect]
     Indication: DIABETIC RETINAL OEDEMA
     Dosage: 10 MG/ML
     Route: 050
     Dates: start: 20140228
  2. KEPPRA [Concomitant]
     Route: 048
  3. INSULIN [Concomitant]

REACTIONS (1)
  - Altered state of consciousness [Recovering/Resolving]
